FAERS Safety Report 4479782-9 (Version None)
Quarter: 2004Q4

REPORT INFORMATION
  Report Type: 
  Country: None (occurrence: None)
  Receive Date: 20041020
  Receipt Date: 20040728
  Transmission Date: 20050328
  Serious: Yes (Other)
  Sender: FDA-Public Use
  Company Number: PHRM2004FR02493

PATIENT
  Age: 72 Year
  Sex: Female

DRUGS (6)
  1. GLEEVEC [Suspect]
     Indication: CHRONIC MYELOID LEUKAEMIA
     Dosage: 400 MG/DAY
     Route: 048
     Dates: start: 20031110
  2. RENITEC [Concomitant]
     Dosage: 20 MG DAILY
     Route: 065
  3. NIDREL [Concomitant]
     Dosage: 1 DF DAILY
     Route: 065
  4. GINKOR [Concomitant]
     Dosage: 2 DF DAILY
  5. KARDEGIC [Concomitant]
     Dosage: 1 DF PER DAY
     Route: 065
  6. IMODIUM [Suspect]
     Dosage: 1 OR 2 DF PER DAY
     Route: 048

REACTIONS (4)
  - ECZEMA [None]
  - LICHEN PLANUS [None]
  - RASH PAPULAR [None]
  - TOXIC SKIN ERUPTION [None]
